FAERS Safety Report 21891626 (Version 1)
Quarter: 2023Q1

REPORT INFORMATION
  Report Type: Spontaneous
  Country: US (occurrence: None)
  Receive Date: 20230120
  Receipt Date: 20230120
  Transmission Date: 20230417
  Serious: Yes (Other)
  Sender: FDA-Public Use
  Company Number: None

PATIENT
  Age: 10 Month
  Sex: Female

DRUGS (1)
  1. APRACLONIDINE OPHTHALMIC [Suspect]
     Active Substance: APRACLONIDINE HYDROCHLORIDE
     Indication: Anisocoria
     Dosage: OTHER FREQUENCY : ONE DOSE EACH EYE;?
     Route: 047
     Dates: start: 20230118, end: 20230118

REACTIONS (3)
  - Lethargy [None]
  - Somnolence [None]
  - Hypothermia [None]

NARRATIVE: CASE EVENT DATE: 20230118
